FAERS Safety Report 18623924 (Version 2)
Quarter: 2021Q1

REPORT INFORMATION
  Report Type: Spontaneous
  Country: US (occurrence: US)
  Receive Date: 20201216
  Receipt Date: 20210106
  Transmission Date: 20210419
  Serious: Yes (Hospitalization, Other)
  Sender: FDA-Public Use
  Company Number: US-BIOGEN-2020BI00943391

PATIENT
  Age: 33 Year
  Sex: Female

DRUGS (4)
  1. TECFIDERA [Suspect]
     Active Substance: DIMETHYL FUMARATE
     Indication: MULTIPLE SCLEROSIS
     Dates: start: 20201012
  2. TECFIDERA [Suspect]
     Active Substance: DIMETHYL FUMARATE
     Dosage: STARTING DOSE
     Route: 048
     Dates: start: 20201014, end: 20201020
  3. TECFIDERA [Suspect]
     Active Substance: DIMETHYL FUMARATE
     Dosage: MAINTENANCE DOSE
     Dates: start: 20201021, end: 20201102
  4. TECFIDERA [Suspect]
     Active Substance: DIMETHYL FUMARATE

REACTIONS (10)
  - Diarrhoea [Recovered/Resolved]
  - Vomiting [Recovered/Resolved]
  - Autoimmune thyroiditis [Unknown]
  - Systemic lupus erythematosus [Unknown]
  - Weight decreased [Not Recovered/Not Resolved]
  - Breast abscess [Unknown]
  - Coagulopathy [Unknown]
  - Mixed connective tissue disease [Unknown]
  - Feeling abnormal [Unknown]
  - Dehydration [Recovered/Resolved]

NARRATIVE: CASE EVENT DATE: 202010
